FAERS Safety Report 22627362 (Version 2)
Quarter: 2023Q2

REPORT INFORMATION
  Report Type: Spontaneous
  Country: FR (occurrence: FR)
  Receive Date: 20230622
  Receipt Date: 20230626
  Transmission Date: 20230722
  Serious: Yes (Life-Threatening, Other)
  Sender: FDA-Public Use
  Company Number: None

PATIENT
  Age: 68 Year
  Sex: Male
  Weight: 84 kg

DRUGS (9)
  1. OPDIVO [Suspect]
     Active Substance: NIVOLUMAB
     Indication: Metastatic malignant melanoma
     Route: 042
     Dates: start: 20221223, end: 20230407
  2. OPDIVO [Suspect]
     Active Substance: NIVOLUMAB
     Route: 042
     Dates: start: 20230504, end: 20230504
  3. YERVOY [Suspect]
     Active Substance: IPILIMUMAB
     Indication: Metastatic malignant melanoma
     Route: 042
     Dates: start: 20230504, end: 20230504
  4. AUGMENTIN [Suspect]
     Active Substance: AMOXICILLIN\CLAVULANATE POTASSIUM
     Indication: Sinusitis
     Route: 048
     Dates: start: 20230516, end: 20230524
  5. PREDNISOLONE [Suspect]
     Active Substance: PREDNISOLONE
     Indication: Sinusitis
     Route: 048
     Dates: start: 20230518, end: 20230520
  6. PREDNISOLONE [Suspect]
     Active Substance: PREDNISOLONE
     Route: 048
     Dates: start: 20230518, end: 20230520
  7. PREDNISOLONE [Suspect]
     Active Substance: PREDNISOLONE
     Route: 048
     Dates: start: 20230518, end: 20230520
  8. PREDNISOLONE [Suspect]
     Active Substance: PREDNISOLONE
     Route: 048
     Dates: start: 20230518, end: 20230520
  9. SACCHAROMYCES CEREVISIAE [Suspect]
     Active Substance: SACCHAROMYCES CEREVISIAE
     Indication: Prophylaxis against diarrhoea
     Route: 048
     Dates: start: 20230516, end: 20230524

REACTIONS (3)
  - Drug reaction with eosinophilia and systemic symptoms [Recovering/Resolving]
  - Prescribed underdose [Unknown]
  - Meningitis aseptic [Recovering/Resolving]

NARRATIVE: CASE EVENT DATE: 20230524
